FAERS Safety Report 14072647 (Version 1)
Quarter: 2017Q4

REPORT INFORMATION
  Report Type: Spontaneous
  Country: US (occurrence: US)
  Receive Date: 20171011
  Receipt Date: 20171011
  Transmission Date: 20180321
  Serious: No
  Sender: FDA-Public Use
  Company Number: None

PATIENT
  Age: 40 Year
  Sex: Female
  Weight: 42.3 kg

DRUGS (1)
  1. PRAZOSIN. [Suspect]
     Active Substance: PRAZOSIN
     Route: 048
     Dates: start: 20170927, end: 20170928

REACTIONS (1)
  - Dizziness [None]

NARRATIVE: CASE EVENT DATE: 20170929
